FAERS Safety Report 7254736-8 (Version None)
Quarter: 2011Q1

REPORT INFORMATION
  Report Type: 
  Country: None (occurrence: None)
  Receive Date: 20110129
  Receipt Date: 20100407
  Transmission Date: 20110831
  Serious: No
  Sender: FDA-Public Use
  Company Number: US-ABBOTT-10P-163-0636904-00

PATIENT
  Sex: Female
  Weight: 74.002 kg

DRUGS (7)
  1. HUMIRA [Suspect]
     Indication: CROHN'S DISEASE
     Route: 058
     Dates: start: 20100304, end: 20100413
  2. DARVOCET-N 100 [Concomitant]
     Indication: PAIN
     Route: 048
  3. ZONEGRAN [Concomitant]
     Indication: PRODUCT USED FOR UNKNOWN INDICATION
     Dosage: 200 MG DAILY
     Route: 048
  4. CELEXA [Concomitant]
     Indication: PRODUCT USED FOR UNKNOWN INDICATION
     Route: 048
  5. SOMA [Concomitant]
     Indication: PRODUCT USED FOR UNKNOWN INDICATION
     Route: 048
  6. TOPROL-XL [Concomitant]
     Indication: PRODUCT USED FOR UNKNOWN INDICATION
     Route: 048
  7. MERCAPTOPURINE [Concomitant]
     Indication: CROHN'S DISEASE
     Route: 048

REACTIONS (5)
  - RASH [None]
  - PRURITUS [None]
  - VERTIGO [None]
  - FATIGUE [None]
  - ASTHENIA [None]
